FAERS Safety Report 23743785 (Version 1)
Quarter: 2024Q2

REPORT INFORMATION
  Report Type: Spontaneous
  Country: MX (occurrence: MX)
  Receive Date: 20240415
  Receipt Date: 20240415
  Transmission Date: 20240715
  Serious: Yes (Other)
  Sender: FDA-Public Use
  Company Number: MX-VANTIVE-2024VAN016208

PATIENT
  Age: 33 Year
  Sex: Male

DRUGS (5)
  1. DIANEAL [Suspect]
     Active Substance: CALCIUM CHLORIDE\DEXTROSE\MAGNESIUM CHLORIDE\SODIUM CHLORIDE\SODIUM LACTATE
     Indication: Peritoneal dialysis
     Dosage: 2 BAGS PER DAY OF 6L
     Route: 033
     Dates: start: 2017
  2. DIANEAL [Suspect]
     Active Substance: CALCIUM CHLORIDE\DEXTROSE\MAGNESIUM CHLORIDE\SODIUM CHLORIDE\SODIUM LACTATE
     Dosage: 1 BAG PER DAY
     Route: 033
     Dates: start: 2017
  3. NIFEDIPINE [Concomitant]
     Active Substance: NIFEDIPINE
     Route: 048
  4. PRAZOSIN [Concomitant]
     Active Substance: PRAZOSIN
     Route: 048
  5. VALSARTAN [Concomitant]
     Active Substance: VALSARTAN
     Route: 048

REACTIONS (3)
  - Pulmonary oedema [Recovered/Resolved]
  - Therapy interrupted [Recovered/Resolved]
  - Peritoneal dialysis complication [Recovered/Resolved]

NARRATIVE: CASE EVENT DATE: 20240403
